FAERS Safety Report 5577109-2 (Version None)
Quarter: 2007Q4

REPORT INFORMATION
  Report Type: 
  Country: None (occurrence: None)
  Receive Date: 20071130
  Receipt Date: 20070912
  Transmission Date: 20080405
  Serious: No
  Sender: FDA-Public Use
  Company Number: US200709002645

PATIENT
  Age: 58 Year
  Sex: Male
  Weight: 93 kg

DRUGS (3)
  1. BYETTA [Suspect]
     Indication: TYPE 2 DIABETES MELLITUS
     Dosage: 5 UG, 2/D, 10 UG, 2/D  SUBCUTANEOUS
     Route: 058
     Dates: start: 20061201, end: 20070801
  2. BYETTA [Suspect]
     Indication: TYPE 2 DIABETES MELLITUS
     Dosage: 5 UG, 2/D, 10 UG, 2/D  SUBCUTANEOUS
     Route: 058
     Dates: start: 20070801
  3. METFORMIN HCL [Concomitant]

REACTIONS (7)
  - BINGE EATING [None]
  - DECREASED APPETITE [None]
  - FOOD AVERSION [None]
  - FOOD CRAVING [None]
  - NAUSEA [None]
  - WEIGHT DECREASED [None]
  - WEIGHT INCREASED [None]
